FAERS Safety Report 6703497-7 (Version None)
Quarter: 2010Q2

REPORT INFORMATION
  Report Type: 
  Country: None (occurrence: None)
  Receive Date: 20100428
  Receipt Date: 20100420
  Transmission Date: 20101027
  Serious: Yes (Hospitalization)
  Sender: FDA-Public Use
  Company Number: 2010SP022905

PATIENT
  Age: 61 Year
  Sex: Female
  Weight: 46.4 kg

DRUGS (10)
  1. REMERON [Suspect]
     Indication: DEPRESSION
     Dosage: 15 MG;QD;PO, 30 MG;QD;PO
     Route: 048
     Dates: start: 20100216, end: 20100413
  2. REMERON [Suspect]
     Indication: DEPRESSION
     Dosage: 15 MG;QD;PO, 30 MG;QD;PO
     Route: 048
     Dates: start: 20100414, end: 20100415
  3. ZYPREXA [Suspect]
     Indication: DRUG USE FOR UNKNOWN INDICATION
     Dosage: 5 MG; ;PO
     Route: 048
     Dates: start: 20090422
  4. VALERIN [Concomitant]
  5. GASMOTIN [Concomitant]
  6. TETRAMIDE [Concomitant]
  7. FLUNITRAZEPAM [Concomitant]
  8. LENDORMIN [Concomitant]
  9. PURSENNID [Concomitant]
  10. YOUPIS [Concomitant]

REACTIONS (9)
  - BLOOD CREATINE PHOSPHOKINASE INCREASED [None]
  - BURNING SENSATION [None]
  - DRUG INTERACTION [None]
  - HYPERHIDROSIS [None]
  - MUSCLE RIGIDITY [None]
  - NASOPHARYNGITIS [None]
  - PYREXIA [None]
  - SEROTONIN SYNDROME [None]
  - TACHYCARDIA [None]
